FAERS Safety Report 10069751 (Version 1)
Quarter: 2014Q2

REPORT INFORMATION
  Report Type: Spontaneous
  Country: US (occurrence: None)
  Receive Date: 20140409
  Receipt Date: 20140409
  Transmission Date: 20141212
  Serious: No
  Sender: FDA-Public Use
  Company Number: None

PATIENT
  Age: 18 Month
  Sex: Male
  Weight: 11.34 kg

DRUGS (1)
  1. OMNICEF [Suspect]
     Indication: PHARYNGITIS STREPTOCOCCAL
     Dosage: 3/4 TEASPOON ONCE DAILY TAKEN BY MOUTH
     Route: 048

REACTIONS (2)
  - Diarrhoea [None]
  - Expired product administered [None]
